FAERS Safety Report 5928790-7 (Version None)
Quarter: 2008Q4

REPORT INFORMATION
  Report Type: 
  Country: None (occurrence: None)
  Receive Date: 20081024
  Receipt Date: 20081020
  Transmission Date: 20090506
  Serious: Yes (Hospitalization)
  Sender: FDA-Public Use
  Company Number: AL-RANBAXY-2008RR-17730

PATIENT
  Age: 54 Month
  Sex: Male

DRUGS (2)
  1. VALPROIC ACID [Suspect]
     Dosage: 30 MG/KG, UNK
  2. PHENOBARBITAL TAB [Suspect]
     Indication: EPILEPSY

REACTIONS (8)
  - ALANINE AMINOTRANSFERASE INCREASED [None]
  - COMA [None]
  - CONFUSIONAL STATE [None]
  - CONVULSION [None]
  - HYPERAMMONAEMIA [None]
  - HYPOGLYCAEMIA [None]
  - REYE'S SYNDROME [None]
  - VOMITING [None]
